FAERS Safety Report 9575911 (Version 1)
Quarter: 2013Q4

REPORT INFORMATION
  Report Type: Spontaneous
  Country: US (occurrence: US)
  Receive Date: 20131001
  Receipt Date: 20131001
  Transmission Date: 20140711
  Serious: No
  Sender: FDA-Public Use
  Company Number: US-AMGEN-USASP2013000151

PATIENT
  Age: 56 Year
  Sex: Male

DRUGS (1)
  1. ENBREL [Suspect]
     Indication: RHEUMATOID ARTHRITIS
     Dosage: 50 MG, QWK
     Dates: start: 20010622, end: 20121214

REACTIONS (4)
  - Chondrolysis [Not Recovered/Not Resolved]
  - Cyst [Recovered/Resolved]
  - Arthropathy [Not Recovered/Not Resolved]
  - Post procedural infection [Not Recovered/Not Resolved]
